FAERS Safety Report 21032754 (Version 1)
Quarter: 2022Q3

REPORT INFORMATION
  Report Type: Spontaneous
  Country: GB (occurrence: None)
  Receive Date: 20220701
  Receipt Date: 20220701
  Transmission Date: 20221027
  Serious: Yes (Other)
  Sender: FDA-Public Use
  Company Number: 2022A239220

PATIENT
  Age: 83 Year
  Sex: Male
  Weight: 58 kg

DRUGS (12)
  1. DAPAGLIFLOZIN [Suspect]
     Active Substance: DAPAGLIFLOZIN
     Dosage: TAKE ONE DAILY
     Route: 065
     Dates: start: 20220613, end: 20220621
  2. ALLOPURINOL [Concomitant]
     Active Substance: ALLOPURINOL
     Dosage: 2 TAKE TWO DAILY
     Route: 065
     Dates: start: 20220117
  3. ATORVASTATIN [Concomitant]
     Active Substance: ATORVASTATIN
     Dosage: TAKE ONE DAILY
     Route: 065
     Dates: start: 20220117
  4. CANDESARTAN [Concomitant]
     Active Substance: CANDESARTAN
     Dosage: TAKE ONE ONCE DAILY
     Route: 065
     Dates: start: 20220117, end: 20220330
  5. DARIFENACIN [Concomitant]
     Active Substance: DARIFENACIN
     Dosage: TAKE ONE DAILY
     Route: 065
     Dates: start: 20220216
  6. EPLERENONE [Concomitant]
     Active Substance: EPLERENONE
     Route: 065
     Dates: start: 20220204
  7. FLUCLOXACILLIN [Concomitant]
     Active Substance: FLUCLOXACILLIN
     Dosage: TAKE ONE 4 TIMES/DAY
     Route: 065
     Dates: start: 20220620
  8. FUROSEMIDE [Concomitant]
     Active Substance: FUROSEMIDE
     Dosage: MORNING.
     Route: 065
     Dates: start: 20220117
  9. CARBOXYMETHYLCELLULOSE SODIUM [Concomitant]
     Active Substance: CARBOXYMETHYLCELLULOSE SODIUM
     Dosage: 1-2 DROPS AS DIRECTED
     Route: 065
     Dates: start: 20220117, end: 20220330
  10. PANTOPRAZOLE [Concomitant]
     Active Substance: PANTOPRAZOLE
     Dosage: TAKE ONE DAILY
     Route: 065
     Dates: start: 20220117
  11. RIVAROXABAN [Concomitant]
     Active Substance: RIVAROXABAN
     Dosage: 1 DAILY
     Route: 065
     Dates: start: 20220117
  12. SACUBITRIL [Concomitant]
     Active Substance: SACUBITRIL
     Dosage: TAKE ONE TABLET TWICE DAILY
     Route: 065
     Dates: start: 20220613

REACTIONS (3)
  - Lip swelling [Recovered/Resolved]
  - Periorbital oedema [Unknown]
  - Dyspnoea [Unknown]

NARRATIVE: CASE EVENT DATE: 20220621
